FAERS Safety Report 15690282 (Version 1)
Quarter: 2018Q4

REPORT INFORMATION
  Report Type: Other
  Country: US (occurrence: US)
  Receive Date: 20181205
  Receipt Date: 20181205
  Transmission Date: 20190205
  Serious: Yes (Death)
  Sender: FDA-Public Use
  Company Number: US-B. BRAUN MEDICAL INC.-2059685

PATIENT
  Age: 9 Year
  Sex: Female

DRUGS (3)
  1. CEFDINIR. [Concomitant]
     Active Substance: CEFDINIR
     Route: 048
  2. IBUPROFEN. [Concomitant]
     Active Substance: IBUPROFEN
  3. CEFTRIAXONE FOR INJECTION AND DEXTROSE INJECTION 0264-3153-11 (NDA 050 [Suspect]
     Active Substance: CEFTRIAXONE SODIUM
     Route: 042

REACTIONS (2)
  - Red blood cell agglutination [None]
  - Sickle cell anaemia with crisis [None]
